APPROVED DRUG PRODUCT: TRIAMTERENE AND HYDROCHLOROTHIAZIDE
Active Ingredient: HYDROCHLOROTHIAZIDE; TRIAMTERENE
Strength: 25MG;50MG
Dosage Form/Route: CAPSULE;ORAL
Application: A074259 | Product #001
Applicant: ANI PHARMACEUTICALS INC
Approved: Mar 30, 1995 | RLD: No | RS: No | Type: DISCN